FAERS Safety Report 9203835 (Version 1)
Quarter: 2013Q2

REPORT INFORMATION
  Report Type: Report from Study
  Country: CA (occurrence: CA)
  Receive Date: 20130402
  Receipt Date: 20130402
  Transmission Date: 20140414
  Serious: Yes (Other)
  Sender: FDA-Public Use
  Company Number: CA-JNJFOC-20130315609

PATIENT
  Age: 24 Year
  Sex: Female
  Weight: 48.2 kg

DRUGS (5)
  1. REMICADE [Suspect]
     Indication: CROHN^S DISEASE
     Dosage: 40TH INFUSION
     Route: 042
     Dates: start: 20130124
  2. REMICADE [Suspect]
     Indication: CROHN^S DISEASE
     Dosage: 1ST INFUSION
     Route: 042
     Dates: start: 2006
  3. IRON [Concomitant]
     Route: 065
  4. IMURAN [Concomitant]
     Route: 065
  5. CATS CLAW [Concomitant]
     Dosage: TWO AND HALF TABLETS
     Route: 048

REACTIONS (4)
  - Laceration [Recovered/Resolved]
  - Fall [Recovered/Resolved]
  - Ligament sprain [Recovered/Resolved]
  - Tooth infection [Recovered/Resolved]
